FAERS Safety Report 6151845-1 (Version None)
Quarter: 2009Q2

REPORT INFORMATION
  Report Type: 
  Country: None (occurrence: None)
  Receive Date: 20090410
  Receipt Date: 20090402
  Transmission Date: 20091009
  Serious: Yes (Disabling)
  Sender: FDA-Public Use
  Company Number: US-B.I. PHARMACEUTICALS,INC./RIDGEFIELD-2009-DE-02847GD

PATIENT
  Age: 52 Year
  Sex: Male

DRUGS (6)
  1. PRAMIPEXOLE DIHYDROCHLORIDE [Suspect]
     Indication: PARKINSON'S DISEASE
     Dosage: 4.5MG
  2. LEVODOPA [Suspect]
     Indication: PARKINSON'S DISEASE
     Dosage: 700MG
  3. SELEGILINE [Suspect]
     Indication: PARKINSON'S DISEASE
     Dosage: 5MG
  4. AMANTADINE HCL [Suspect]
     Indication: PARKINSON'S DISEASE
     Dosage: 300MG
  5. GABAPENTIN [Concomitant]
     Dosage: 900MG
  6. OXYCODONE HCL [Concomitant]
     Dosage: 5MG

REACTIONS (2)
  - OBSESSIVE-COMPULSIVE DISORDER [None]
  - PATHOLOGICAL GAMBLING [None]
